FAERS Safety Report 6310745-4 (Version None)
Quarter: 2009Q3

REPORT INFORMATION
  Report Type: 
  Country: None (occurrence: None)
  Receive Date: 20090812
  Receipt Date: 20090407
  Transmission Date: 20100115
  Serious: Yes (Hospitalization)
  Sender: FDA-Public Use
  Company Number: 486717

PATIENT
  Age: 59 Year
  Sex: Female
  Weight: 66.7 kg

DRUGS (4)
  1. CELLCEPT [Suspect]
     Indication: WAGNER'S DISEASE
     Dosage: 1000 MG 2 PER DAY ORAL
     Route: 048
     Dates: start: 20030101
  2. CELLCEPT [Suspect]
  3. BACTRIM [Concomitant]
  4. FLOVENT [Concomitant]

REACTIONS (18)
  - ANXIETY [None]
  - CONTUSION [None]
  - DRUG INEFFECTIVE [None]
  - DYSPNOEA [None]
  - HAEMORRHAGE [None]
  - HEADACHE [None]
  - JOINT SWELLING [None]
  - LARYNGITIS [None]
  - MUSCLE SPASMS [None]
  - MUSCULOSKELETAL STIFFNESS [None]
  - NAUSEA [None]
  - OTORRHOEA [None]
  - OVERDOSE [None]
  - PAIN [None]
  - PRODUCT COUNTERFEIT [None]
  - PULMONARY HAEMORRHAGE [None]
  - WHEEZING [None]
  - WHITE BLOOD CELL COUNT DECREASED [None]
